FAERS Safety Report 5962795-5 (Version None)
Quarter: 2008Q4

REPORT INFORMATION
  Report Type: 
  Country: None (occurrence: None)
  Receive Date: 20081119
  Receipt Date: 20081119
  Transmission Date: 20090506
  Serious: Yes (Hospitalization)
  Sender: FDA-Public Use
  Company Number: None

PATIENT
  Sex: Male
  Weight: 99.2 kg

DRUGS (1)
  1. ALEMTUZUMAB [Suspect]
     Dosage: ALEMTUZUMAB 643 MG, WEEKS 1-8

REACTIONS (2)
  - RESPIRATORY DISTRESS [None]
  - SEPTIC SHOCK [None]
